FAERS Safety Report 10438256 (Version 1)
Quarter: 2014Q3

REPORT INFORMATION
  Report Type: Spontaneous
  Country: US (occurrence: US)
  Receive Date: 20140908
  Receipt Date: 20140908
  Transmission Date: 20150326
  Serious: Yes (Hospitalization, Congenital Anomaly)
  Sender: FDA-Public Use
  Company Number: US-GLAXOSMITHKLINE-A1021326B

PATIENT
  Sex: Female
  Weight: .8 kg

DRUGS (2)
  1. ADVAIR HFA [Suspect]
     Active Substance: FLUTICASONE PROPIONATE\SALMETEROL XINAFOATE
     Indication: ASTHMA
     Dosage: 1PUFF TWICE PER DAY
     Route: 064
     Dates: start: 2003
  2. FLUTICASONE NASAL SPRAY [Suspect]
     Active Substance: FLUTICASONE\FLUTICASONE PROPIONATE
     Indication: PRODUCT USED FOR UNKNOWN INDICATION
     Route: 064

REACTIONS (6)
  - Cardiac operation [Unknown]
  - Foetal exposure during pregnancy [Unknown]
  - Tracheal fistula repair [Unknown]
  - Tracheo-oesophageal fistula [Unknown]
  - Fallot^s tetralogy [Unknown]
  - Oesophageal atresia [Unknown]
